FAERS Safety Report 9405396 (Version 1)
Quarter: 2013Q3

REPORT INFORMATION
  Report Type: Spontaneous
  Country: JP (occurrence: None)
  Receive Date: 20130715
  Receipt Date: 20130715
  Transmission Date: 20140515
  Serious: Yes (Other)
  Sender: FDA-Public Use
  Company Number: SYM-2013-06080

PATIENT
  Age: 59 Year
  Sex: Male

DRUGS (3)
  1. FLUOROURACIL (FLUOROURACIL) (SOLUTION FOR INFUSION) (FLUOROURACIL) [Suspect]
     Indication: ANAL SQUAMOUS CELL CARCINOMA
     Dosage: STOPPED INTRAVENOUS (NOT OTHERWISE SPECIFIED)
     Route: 042
  2. MITOMYCIN [Suspect]
     Indication: ANAL SQUAMOUS CELL CARCINOMA
     Dosage: EVERY CYCLE, INTRAVENOUS (NOT OTHERWISE SPECIFIED) STOPPED?
     Route: 042
  3. UNSPECIFIED INGREDIENT [Suspect]
     Indication: ANAL SQUAMOUS CELL CARCINOMA
     Dosage: STOPPED 60 GY

REACTIONS (1)
  - White blood cell count decreased [None]
